FAERS Safety Report 7999046-6 (Version None)
Quarter: 2011Q4

REPORT INFORMATION
  Report Type: 
  Country: None (occurrence: None)
  Receive Date: 20111221
  Receipt Date: 20111215
  Transmission Date: 20120403
  Serious: Yes (Hospitalization)
  Sender: FDA-Public Use
  Company Number: ES-ROCHE-779679

PATIENT
  Sex: Male
  Weight: 81 kg

DRUGS (9)
  1. XELODA [Suspect]
     Indication: COLORECTAL CANCER
     Dosage: FREQUENCY:14 DAYS EVERY 21 DAYS.  LAST DOSE PRIOR TO SAE 8 APR 2011. PERMANENTLY DISCONTINUED
     Route: 048
     Dates: start: 20101229, end: 20110408
  2. EPROSARTAN [Concomitant]
  3. IRINOTECAN HYDROCHLORIDE [Suspect]
     Indication: COLORECTAL CANCER
     Dosage: FORM: INFUSION. LAST DOSE PRIOR TO SAE 28 MARCH 2011. PERMANENTLY DISCONTINUED.
     Route: 042
     Dates: start: 20101229, end: 20110328
  4. AMOXICILLIN [Concomitant]
     Dates: start: 20110420, end: 20110422
  5. SIMVASTATIN [Concomitant]
  6. AVASTIN [Suspect]
     Indication: COLORECTAL CANCER
     Dosage: FOR: INFUSION. LAST DOSE PRIOR TO SAE 28 MARCH 2011. PERMANENTLY DISCONTINUED ON 16 MAY 2011
     Route: 042
     Dates: start: 20101229, end: 20110328
  7. OMEPRAZOLE [Concomitant]
  8. AMOXICILLIN [Concomitant]
     Dates: start: 20110408, end: 20110415
  9. ROTIGOTINE [Concomitant]

REACTIONS (2)
  - VERTIGO [None]
  - PULMONARY EMBOLISM [None]
